FAERS Safety Report 9011014 (Version 3)
Quarter: 2013Q2

REPORT INFORMATION
  Report Type: Spontaneous
  Country: US (occurrence: US)
  Receive Date: 20130109
  Receipt Date: 20130415
  Transmission Date: 20140414
  Serious: No
  Sender: FDA-Public Use
  Company Number: US-ASTRAZENECA-2013SE00689

PATIENT
  Sex: Female

DRUGS (3)
  1. SYMBICORT PMDI [Suspect]
     Indication: ASTHMA
     Dosage: 80/4.5 MCG,1 PUFF BID
     Route: 055
  2. CLARITIN D [Concomitant]
     Indication: NASAL CONGESTION
  3. RESCUE INHALER [Concomitant]

REACTIONS (6)
  - Malaise [Unknown]
  - Infection [Recovering/Resolving]
  - Nasal congestion [Unknown]
  - Cough [Unknown]
  - Off label use [Unknown]
  - Intentional drug misuse [Unknown]
